FAERS Safety Report 14690167 (Version 2)
Quarter: 2018Q2

REPORT INFORMATION
  Report Type: Spontaneous
  Country: DE (occurrence: DE)
  Receive Date: 20180328
  Receipt Date: 20180420
  Transmission Date: 20180711
  Serious: Yes (Other)
  Sender: FDA-Public Use
  Company Number: DE-DRREDDYS-GER/GER/18/0097087

PATIENT
  Age: 64 Year
  Sex: Male
  Weight: 57 kg

DRUGS (2)
  1. ELIQUIS [Concomitant]
     Active Substance: APIXABAN
     Indication: PRODUCT USED FOR UNKNOWN INDICATION
  2. LEVETIRACETAM. [Suspect]
     Active Substance: LEVETIRACETAM
     Indication: EPILEPSY
     Dosage: 2 WEEKS 250 MG (1-0-1), THEN 500 MG (1-0-1), THEN HALVE THE MORNING DOSE IN SEPTEMBER 2017
     Route: 048
     Dates: start: 20170501

REACTIONS (8)
  - Pancreatitis [Unknown]
  - Asthenia [Unknown]
  - Dizziness [Unknown]
  - Weight decreased [Unknown]
  - Memory impairment [Unknown]
  - Red blood cell count decreased [Unknown]
  - Autoimmune thyroiditis [Unknown]
  - Fatigue [Recovering/Resolving]

NARRATIVE: CASE EVENT DATE: 201706
